FAERS Safety Report 5903712-3 (Version None)
Quarter: 2008Q3

REPORT INFORMATION
  Report Type: 
  Country: None (occurrence: None)
  Receive Date: 20080930
  Receipt Date: 20080918
  Transmission Date: 20090109
  Serious: No
  Sender: FDA-Public Use
  Company Number: US-B.I. PHARMACEUTICALS,INC./RIDGEFIELD-2008-BP-14093BP

PATIENT
  Sex: Male

DRUGS (5)
  1. FLOMAX [Suspect]
     Indication: BENIGN PROSTATIC HYPERPLASIA
     Dosage: .4MG
     Route: 048
     Dates: start: 20070101
  2. XALATAN [Concomitant]
     Indication: GLAUCOMA
  3. ENALAPRIL MALEATE [Concomitant]
     Indication: HYPERTENSION
  4. TIMOLOL [Concomitant]
     Indication: GLAUCOMA
  5. ASPIRIN [Concomitant]
     Indication: PROPHYLAXIS

REACTIONS (2)
  - RASH ERYTHEMATOUS [None]
  - SEBORRHOEIC KERATOSIS [None]
